FAERS Safety Report 12531457 (Version 1)
Quarter: 2016Q3

REPORT INFORMATION
  Report Type: Spontaneous
  Country: US (occurrence: US)
  Receive Date: 20160706
  Receipt Date: 20160706
  Transmission Date: 20161109
  Serious: No
  Sender: FDA-Public Use
  Company Number: US-MALLINCKRODT-T201601497

PATIENT
  Sex: Male
  Weight: 64 kg

DRUGS (2)
  1. OXYCODONE [Suspect]
     Active Substance: OXYCODONE
     Indication: PAIN
     Dosage: 30MG; 4 TIMES A DAY
     Route: 048
     Dates: start: 2014
  2. OXYCODONE [Suspect]
     Active Substance: OXYCODONE
     Indication: BLADDER CANCER

REACTIONS (3)
  - Product physical issue [Not Recovered/Not Resolved]
  - Drug ineffective [Not Recovered/Not Resolved]
  - Product colour issue [Not Recovered/Not Resolved]
